FAERS Safety Report 9417689 (Version 5)
Quarter: 2013Q4

REPORT INFORMATION
  Report Type: Spontaneous
  Country: CA (occurrence: None)
  Receive Date: 20130719
  Receipt Date: 20131125
  Transmission Date: 20140711
  Serious: Yes (Hospitalization)
  Sender: FDA-Public Use
  Company Number: SYM-2013-06670

PATIENT
  Age: 83 Year
  Sex: Male

DRUGS (18)
  1. 5-FU [Suspect]
     Indication: COLORECTAL CANCER METASTATIC
     Route: 040
     Dates: start: 20130613, end: 20130613
  2. AFLIBERCEPT [Suspect]
     Indication: COLORECTAL CANCER METASTATIC
     Route: 041
     Dates: start: 20130613, end: 20130613
  3. IRINOTECAN (IRINOTECAN) (SOLUTION FOR INFUSION) (IRINOTECAN) [Suspect]
     Indication: COLORECTAL CANCER METASTATIC
     Route: 041
     Dates: start: 20130613, end: 20130613
  4. LEUCOVORIN (FOLINIC ACID) (SOLUTION FOR INFUSION) (FOLINIC ACID) [Suspect]
     Indication: COLORECTAL CANCER METASTATIC
     Route: 041
     Dates: start: 20130613, end: 20130613
  5. ASPIRIN [Concomitant]
  6. AMLODIPINE [Concomitant]
  7. PROCHLORPERAZINE [Concomitant]
  8. LOPERAMIDE [Concomitant]
  9. FOLINIC ACID [Concomitant]
  10. CELLCEPT [Concomitant]
  11. SIROLIMUS [Concomitant]
  12. MULTIVITAMINS [Concomitant]
  13. CLONAZEPAM [Concomitant]
  14. ATORAVASTATIN [Concomitant]
  15. MYCOPHENOLATE MOFETIL [Concomitant]
  16. CALCIUM CABONATE [Concomitant]
  17. LEVOTHYROXINE [Concomitant]
  18. PANTOPRAZOLE [Concomitant]

REACTIONS (4)
  - Diarrhoea [None]
  - Blood sodium decreased [None]
  - Blood bicarbonate decreased [None]
  - Blood creatinine increased [None]
